FAERS Safety Report 22075649 (Version 1)
Quarter: 2023Q1

REPORT INFORMATION
  Report Type: Spontaneous
  Country: EG (occurrence: EG)
  Receive Date: 20230308
  Receipt Date: 20230308
  Transmission Date: 20230418
  Serious: Yes (Other)
  Sender: FDA-Public Use
  Company Number: EG-PFIZER INC-PV202300042088

PATIENT
  Age: 27 Year
  Sex: Female
  Weight: 75 kg

DRUGS (3)
  1. ZITHROMAX [Suspect]
     Active Substance: AZITHROMYCIN DIHYDRATE
     Indication: Tonsillitis
     Dosage: 500 MG, 1X/DAY
     Route: 048
     Dates: start: 20220709, end: 20220713
  2. ZITHROMAX [Suspect]
     Active Substance: AZITHROMYCIN DIHYDRATE
     Indication: Nasopharyngitis
  3. PANADOL COLD AND FLU [Concomitant]
     Active Substance: ACETAMINOPHEN\CHLORPHENIRAMINE MALEATE\PHENYLEPHRINE HYDROCHLORIDE
     Indication: Nasopharyngitis
     Dosage: UNK, 3X/DAY
     Dates: start: 20220709, end: 20220713

REACTIONS (4)
  - Foetal death [Unknown]
  - Ageusia [Unknown]
  - Anosmia [Unknown]
  - COVID-19 [Unknown]

NARRATIVE: CASE EVENT DATE: 20220809
